FAERS Safety Report 7344482-4 (Version None)
Quarter: 2011Q1

REPORT INFORMATION
  Report Type: 
  Country: None (occurrence: None)
  Receive Date: 20110310
  Receipt Date: 20110301
  Transmission Date: 20110831
  Serious: Yes (Life-Threatening, Hospitalization)
  Sender: FDA-Public Use
  Company Number: US-NAPPMUNDI-USA-2011-0064754

PATIENT
  Sex: Male

DRUGS (1)
  1. OXYCODONE HCL [Suspect]
     Indication: BACK PAIN

REACTIONS (4)
  - HALLUCINATION [None]
  - HEPATIC NEOPLASM MALIGNANT [None]
  - BLOOD GLUCOSE INCREASED [None]
  - INCOHERENT [None]
